FAERS Safety Report 13819418 (Version 2)
Quarter: 2018Q1

REPORT INFORMATION
  Report Type: Report from Study
  Country: US (occurrence: US)
  Receive Date: 20170731
  Receipt Date: 20180201
  Transmission Date: 20180508
  Serious: No
  Sender: FDA-Public Use
  Company Number: US-EXELIXIS-CABO-17008937

PATIENT
  Age: 82 Year
  Sex: Male

DRUGS (14)
  1. BISOPROLOL [Concomitant]
     Active Substance: BISOPROLOL
  2. BENZONATATE. [Concomitant]
     Active Substance: BENZONATATE
  3. DALIRESP [Concomitant]
     Active Substance: ROFLUMILAST
  4. FUROSEMIDE. [Concomitant]
     Active Substance: FUROSEMIDE
  5. LOPERAMIDE [Concomitant]
     Active Substance: LOPERAMIDE
  6. MAGNESIUM [Concomitant]
     Active Substance: MAGNESIUM
  7. CABOMETYX [Suspect]
     Active Substance: CABOZANTINIB S-MALATE
     Indication: RENAL CANCER
     Dosage: 40 MG, QD
     Route: 048
     Dates: start: 201703
  8. ALBUTEROL. [Concomitant]
     Active Substance: ALBUTEROL
  9. ALLOPURINOL. [Concomitant]
     Active Substance: ALLOPURINOL
  10. ADVAIR HFA [Concomitant]
     Active Substance: FLUTICASONE PROPIONATE\SALMETEROL XINAFOATE
  11. BURINEX [Concomitant]
     Active Substance: BUMETANIDE
  12. CLARITIN [Concomitant]
     Active Substance: LORATADINE
  13. METOPROLOL. [Concomitant]
     Active Substance: METOPROLOL
  14. GABAPENTIN. [Concomitant]
     Active Substance: GABAPENTIN

REACTIONS (3)
  - Blister [Unknown]
  - Dysphonia [Unknown]
  - Glossodynia [Unknown]

NARRATIVE: CASE EVENT DATE: 20170405
